FAERS Safety Report 25387473 (Version 2)
Quarter: 2025Q3

REPORT INFORMATION
  Report Type: Spontaneous
  Country: GB (occurrence: GB)
  Receive Date: 20250602
  Receipt Date: 20250810
  Transmission Date: 20251021
  Serious: Yes (Other)
  Sender: ALEXION PHARMACEUTICALS
  Company Number: GB-AstraZeneca-CH-00880452A

PATIENT
  Sex: Male

DRUGS (1)
  1. LOKELMA [Suspect]
     Active Substance: SODIUM ZIRCONIUM CYCLOSILICATE
     Route: 065

REACTIONS (3)
  - Renal tubular acidosis [Unknown]
  - Type 1 diabetes mellitus [Unknown]
  - Blood potassium abnormal [Unknown]
